FAERS Safety Report 5646782-2 (Version None)
Quarter: 2008Q1

REPORT INFORMATION
  Report Type: 
  Country: None (occurrence: None)
  Receive Date: 20080303
  Receipt Date: 20080225
  Transmission Date: 20080703
  Serious: Yes (Death, Life-Threatening)
  Sender: FDA-Public Use
  Company Number: DE-AVENTIS-200810548DE

PATIENT
  Age: 71 Year
  Sex: Female

DRUGS (21)
  1. NOVALGIN                           /00039501/ [Suspect]
     Indication: PAIN
     Route: 048
     Dates: start: 20041126, end: 20041126
  2. NOVALGIN                           /00039501/ [Suspect]
     Route: 048
     Dates: start: 20041206, end: 20041210
  3. CLEXANE [Suspect]
     Route: 058
     Dates: start: 20041125, end: 20041202
  4. CEFUROXIME [Suspect]
     Route: 042
     Dates: start: 20041130, end: 20041202
  5. VOLTAREN-XR [Suspect]
     Route: 048
     Dates: start: 20041202, end: 20041203
  6. VOLTAREN-XR [Suspect]
     Indication: PAIN
     Route: 048
     Dates: start: 20041202, end: 20041203
  7. ZYLORIC [Suspect]
     Route: 048
     Dates: start: 20041209, end: 20041210
  8. TRAMAL [Suspect]
     Indication: PAIN
     Route: 042
     Dates: start: 20041129, end: 20041129
  9. NEURONTIN [Suspect]
     Indication: PAIN
     Route: 048
     Dates: start: 20041201, end: 20041202
  10. ZOCOR [Suspect]
     Route: 048
     Dates: start: 20041202, end: 20041210
  11. NEXIUM [Suspect]
     Route: 048
     Dates: start: 20041202, end: 20041210
  12. PASPERTIN [Suspect]
     Indication: NAUSEA
     Route: 048
     Dates: start: 20041206, end: 20041210
  13. OXAZEPAM [Concomitant]
     Dosage: DOSE: NOT REPORTED
     Route: 048
     Dates: start: 20041125, end: 20041125
  14. ESIDRIX [Concomitant]
     Indication: HYPERTENSION
     Route: 048
     Dates: start: 20041114, end: 20041210
  15. PRES PLUS [Concomitant]
     Indication: HYPERTENSION
     Route: 048
     Dates: start: 20041114, end: 20041210
  16. KALINOR                            /00031402/ [Concomitant]
     Dosage: DOSE: NOT REPORTED
     Route: 048
     Dates: start: 20041120, end: 20041121
  17. KALINOR                            /00031402/ [Concomitant]
     Dosage: DOSE: NOT REPORTED
     Route: 048
     Dates: start: 20041130, end: 20041204
  18. MUTAFLOR [Concomitant]
     Dosage: DOSE: 1-0-1
     Route: 048
     Dates: start: 20041201, end: 20041211
  19. KALIUM-DURILES [Concomitant]
     Dosage: DOSE: 2-2-2
     Route: 048
     Dates: start: 20041205, end: 20041210
  20. PAN-OPHTAL [Concomitant]
     Indication: EYE PAIN
     Dosage: DOSE: NOT REPORTED
     Route: 061
     Dates: start: 20041208, end: 20041211
  21. VINCRISTINE [Concomitant]
     Indication: LYMPHOMA
     Route: 042
     Dates: start: 20041210, end: 20041210

REACTIONS (7)
  - BLISTER [None]
  - LIP EROSION [None]
  - MOUTH ULCERATION [None]
  - NIKOLSKY'S SIGN [None]
  - OCULAR HYPERAEMIA [None]
  - RASH MACULAR [None]
  - TOXIC EPIDERMAL NECROLYSIS [None]
